FAERS Safety Report 25188436 (Version 1)
Quarter: 2025Q2

REPORT INFORMATION
  Report Type: Spontaneous
  Country: US (occurrence: US)
  Receive Date: 20250411
  Receipt Date: 20250411
  Transmission Date: 20250717
  Serious: Yes (Other)
  Sender: APOTEX
  Company Number: US-APOTEX-2025AP004733

PATIENT
  Age: 56 Year
  Sex: Female

DRUGS (1)
  1. APIXABAN [Suspect]
     Active Substance: APIXABAN
     Indication: Thrombosis
     Route: 065

REACTIONS (3)
  - Subcapsular splenic haematoma [Unknown]
  - Splenic cyst [Unknown]
  - Haemorrhagic cyst [Unknown]
